FAERS Safety Report 8820525 (Version 3)
Quarter: 2012Q4

REPORT INFORMATION
  Report Type: 
  Country: JP (occurrence: JP)
  Receive Date: 20121002
  Receipt Date: 20121031
  Transmission Date: 20130627
  Serious: Yes (Hospitalization)
  Sender: FDA-Public Use
  Company Number: JP-SANOFI-AVENTIS-2012SA071498

PATIENT
  Age: 54 Year
  Sex: Female

DRUGS (9)
  1. MYSLEE [Suspect]
     Indication: INSOMNIA
     Route: 048
     Dates: start: 20110113
  2. GASTER [Suspect]
     Indication: CHRONIC GASTRITIS
     Route: 048
     Dates: start: 20100916
  3. DEPAS [Suspect]
     Indication: PSYCHOSOMATIC DISEASE
     Route: 048
     Dates: start: 20070710
  4. DEPROMEL [Suspect]
     Indication: DEPRESSION
     Route: 048
     Dates: start: 20070710, end: 20070910
  5. DEPROMEL [Suspect]
     Indication: DEPRESSION
     Route: 048
     Dates: start: 20070910
  6. GASMOTIN [Concomitant]
     Indication: CHRONIC GASTRITIS
     Dates: start: 20100916, end: 20110210
  7. MAGNESIUM OXIDE [Concomitant]
     Indication: CONSTIPATION
     Dates: start: 20101014, end: 20110210
  8. CALONAL [Concomitant]
     Indication: HEADACHE
     Dates: start: 20110113
  9. ALLEGRA [Concomitant]
     Indication: ALLERGIC RHINITIS
     Dates: start: 20110210

REACTIONS (5)
  - Hepatotoxicity [Recovering/Resolving]
  - Rhinitis allergic [Unknown]
  - Constipation [Recovered/Resolved]
  - Insomnia [Recovering/Resolving]
  - Headache [Recovering/Resolving]
